FAERS Safety Report 24074314 (Version 3)
Quarter: 2024Q4

REPORT INFORMATION
  Report Type: Spontaneous
  Country: AU (occurrence: AU)
  Receive Date: 20240710
  Receipt Date: 20241001
  Transmission Date: 20250114
  Serious: Yes (Hospitalization, Other)
  Sender: PFIZER
  Company Number: AU-MLMSERVICE-20240628-PI112907-00270-1

PATIENT
  Age: 50 Year
  Sex: Male

DRUGS (3)
  1. METHYLPREDNISOLONE [Suspect]
     Active Substance: METHYLPREDNISOLONE
     Indication: Immunosuppressant drug therapy
     Dosage: HIGH-DOSE
  2. TACROLIMUS [Suspect]
     Active Substance: TACROLIMUS
     Indication: Immunosuppressant drug therapy
     Dosage: UNK
  3. PREDNISOLONE [Suspect]
     Active Substance: PREDNISOLONE
     Indication: Immunosuppressant drug therapy
     Dosage: UNK

REACTIONS (4)
  - Pseudomonas infection [Recovering/Resolving]
  - Scedosporium infection [Recovering/Resolving]
  - Scedosporium infection [Recovering/Resolving]
  - Aspergillus infection [Recovering/Resolving]
